FAERS Safety Report 7912577-X (Version None)
Quarter: 2011Q4

REPORT INFORMATION
  Report Type: 
  Country: None (occurrence: None)
  Receive Date: 20111114
  Receipt Date: 20111107
  Transmission Date: 20120403
  Serious: Yes (Hospitalization, Other)
  Sender: FDA-Public Use
  Company Number: US-ABBOTT-11P-163-0873023-00

PATIENT
  Age: 58 Year
  Sex: Female

DRUGS (5)
  1. ACETAMINOPHEN [Concomitant]
     Indication: PRODUCT USED FOR UNKNOWN INDICATION
  2. HYDROCODONE BITARTRATE [Concomitant]
     Indication: PRODUCT USED FOR UNKNOWN INDICATION
  3. HUMIRA [Suspect]
     Indication: CROHN'S DISEASE
     Route: 058
     Dates: start: 20110829, end: 20111003
  4. PREDNISONE TAB [Concomitant]
     Indication: PRODUCT USED FOR UNKNOWN INDICATION
     Dosage: THIS WEEK (WEANING OFF)
  5. PREDNISONE TAB [Concomitant]
     Dosage: NEXT WEEK (WEANING OFF)

REACTIONS (4)
  - ABDOMINAL PAIN [None]
  - WEIGHT DECREASED [None]
  - INTESTINAL OPERATION [None]
  - DIARRHOEA [None]
